FAERS Safety Report 20700649 (Version 1)
Quarter: 2022Q2

REPORT INFORMATION
  Report Type: Spontaneous
  Country: FR (occurrence: FR)
  Receive Date: 20220412
  Receipt Date: 20220412
  Transmission Date: 20220721
  Serious: Yes (Other)
  Sender: FDA-Public Use
  Company Number: FR-PFIZER INC-202200525388

PATIENT
  Sex: Male

DRUGS (2)
  1. LORLATINIB [Suspect]
     Active Substance: LORLATINIB
     Dosage: 400 MG, DAILY (ACCIDENTAL INTAKE)
  2. LORLATINIB [Suspect]
     Active Substance: LORLATINIB
     Dosage: 100 MG, DAILY, 4 TABLETS IN ONE INTAKE) - PRESCRIBED DOSE

REACTIONS (6)
  - Accidental overdose [Unknown]
  - Neurotoxicity [Unknown]
  - Loss of consciousness [Unknown]
  - Neurological decompensation [Unknown]
  - Balance disorder [Unknown]
  - Vomiting [Unknown]

NARRATIVE: CASE EVENT DATE: 20210101
